FAERS Safety Report 6393045-6 (Version None)
Quarter: 2009Q4

REPORT INFORMATION
  Report Type: 
  Country: None (occurrence: None)
  Receive Date: 20091008
  Receipt Date: 20090928
  Transmission Date: 20100525
  Serious: Yes (Other)
  Sender: FDA-Public Use
  Company Number: FR-RANBAXY-2009US-28427

PATIENT

DRUGS (3)
  1. CLORAZEPATE DIPOTASSIUM [Suspect]
     Indication: WITHDRAWAL SYNDROME
     Dosage: UNK, UNK
     Route: 065
  2. NALTREXONE HYDROCHLORIDE [Concomitant]
     Indication: ALCOHOL WITHDRAWAL SYNDROME
     Dosage: 50 MG, QD
     Route: 065
  3. BUPRENORPHINE [Concomitant]
     Indication: DRUG ABUSE
     Dosage: 8 MG, QD
     Route: 065

REACTIONS (2)
  - ABNORMAL BEHAVIOUR [None]
  - ANTEROGRADE AMNESIA [None]
